FAERS Safety Report 17866487 (Version 1)
Quarter: 2020Q2

REPORT INFORMATION
  Report Type: Spontaneous
  Country: CN (occurrence: CN)
  Receive Date: 20200605
  Receipt Date: 20200605
  Transmission Date: 20200714
  Serious: Yes (Life-Threatening, Hospitalization, Other)
  Sender: FDA-Public Use
  Company Number: CN-SA-2020SA143665

PATIENT

DRUGS (1)
  1. CLEXANE [Suspect]
     Active Substance: ENOXAPARIN SODIUM
     Indication: ANTICOAGULANT THERAPY
     Dosage: 0.3 ML, QD
     Route: 058
     Dates: start: 20200521, end: 20200522

REACTIONS (2)
  - Blood pressure decreased [Unknown]
  - Gastrointestinal haemorrhage [Unknown]

NARRATIVE: CASE EVENT DATE: 20200522
